FAERS Safety Report 4447297-X (Version None)
Quarter: 2004Q3

REPORT INFORMATION
  Report Type: 
  Country: None (occurrence: None)
  Receive Date: 20040813
  Receipt Date: 20040702
  Transmission Date: 20050211
  Serious: No
  Sender: FDA-Public Use
  Company Number: S04-USA-04109-01

PATIENT
  Age: 92 Year
  Sex: Female

DRUGS (8)
  1. NAMENDA [Suspect]
     Indication: DEMENTIA ALZHEIMER'S TYPE
     Dosage: 10 MG QD PO
     Route: 048
     Dates: start: 20040601, end: 20040702
  2. NAMENDA [Suspect]
     Indication: DEMENTIA ALZHEIMER'S TYPE
     Dosage: 5 MG QD PO
     Route: 048
     Dates: start: 20040601, end: 20040601
  3. PAXIL (PAROXETINE HYDROCHLRIDE) [Concomitant]
  4. DARVOCET-N 100 [Concomitant]
  5. DETROL (TOLTERODINE L-TRATRATE) [Concomitant]
  6. VERAPAMIL [Concomitant]
  7. ANTIVERT [Concomitant]
  8. PROTONIX [Concomitant]

REACTIONS (1)
  - DYSKINESIA [None]
